FAERS Safety Report 4718886-X (Version None)
Quarter: 2005Q3

REPORT INFORMATION
  Report Type: 
  Country: None (occurrence: None)
  Receive Date: 20050719
  Receipt Date: 20050707
  Transmission Date: 20060218
  Serious: Yes (Hospitalization)
  Sender: FDA-Public Use
  Company Number: 2005099014

PATIENT
  Sex: Female

DRUGS (3)
  1. CARDURA [Suspect]
     Indication: HYPERTENSION
  2. ACE INHIBITOR NOS (ACE INHIBITOR NOS0 [Concomitant]
  3. ANTIHYPERTENSIVES (ANTIHYPERTENSIVES) [Concomitant]

REACTIONS (1)
  - HEPATOTOXICITY [None]
